FAERS Safety Report 9749534 (Version 1)
Quarter: 2013Q3

REPORT INFORMATION
  Report Type: Spontaneous
  Country: IT (occurrence: None)
  Receive Date: 20130912
  Receipt Date: 20130912
  Transmission Date: 20140515
  Serious: Yes (Hospitalization)
  Sender: FDA-Public Use
  Company Number: AUR-APL-2013-07542

PATIENT
  Age: 78 Year
  Sex: Female

DRUGS (6)
  1. CITALOPRAM (CITALOPRAM) [Suspect]
     Indication: PRODUCT USED FOR UNKNOWN INDICATION
     Dosage: 1 DOSAGE FORMS, 1 D), ORAL
     Route: 048
     Dates: start: 20120101
  2. LEXOTAN (BROMAZEPAM) [Concomitant]
  3. HALCION (TRIAZOLAM) [Concomitant]
  4. MOVICOL (POLYETHYL. GLYC. W/POTAS. CHLOR./SOD. BICARB.) [Concomitant]
  5. LANSOX (LANSOPRAZOLE) [Concomitant]
  6. LYRICA (PREGABALIN) [Concomitant]

REACTIONS (2)
  - Sopor [None]
  - Hyponatraemia [None]
